FAERS Safety Report 15252276 (Version 1)
Quarter: 2018Q3

REPORT INFORMATION
  Report Type: Spontaneous
  Country: US (occurrence: US)
  Receive Date: 20180717
  Receipt Date: 20180717
  Transmission Date: 20181010
  Serious: Yes (Disabling)
  Sender: FDA-Public Use
  Company Number: None

PATIENT
  Age: 62 Year
  Sex: Female
  Weight: 65.25 kg

DRUGS (19)
  1. SYPRINE [Concomitant]
     Active Substance: TRIENTINE HYDROCHLORIDE
  2. MULTIVITAMIN WITHOUT COPPER [Concomitant]
  3. HYALURONIC ACID [Concomitant]
     Active Substance: HYALURONIC ACID
  4. ARTEMISIA [Concomitant]
     Active Substance: HERBALS
  5. BOSWELLIA [Concomitant]
  6. CAT^S CLAW [Concomitant]
     Active Substance: CAT^S CLAW
  7. GINGKO BILOBA [Concomitant]
     Active Substance: GINKGO
  8. ACETYL?L?CARNITINE [Concomitant]
  9. TRIENTINE HYDROCHLORIDE??NO LONGER HAVE BOTTLE. [Suspect]
     Active Substance: TRIENTINE HYDROCHLORIDE
     Indication: HEPATO-LENTICULAR DEGENERATION
     Dosage: ?          QUANTITY:4 CAPSULE(S);?
     Route: 048
  10. TMG [Concomitant]
  11. ALPHA LIPOIC ACID [Concomitant]
     Active Substance: .ALPHA.-LIPOIC ACID
  12. GINGER. [Concomitant]
     Active Substance: GINGER
  13. NAC [Concomitant]
  14. CURCUMIN [Concomitant]
     Active Substance: CURCUMIN
  15. YUCCA [Concomitant]
  16. GLUCOSAMINE CHONDROITIN [Concomitant]
     Active Substance: CHONDROITIN SULFATE (BOVINE)\GLUCOSAMINE HYDROCHLORIDE
  17. MSM [Concomitant]
     Active Substance: DIMETHYL SULFONE
  18. GRAVIOLA [Concomitant]
  19. SELENIUM [Concomitant]
     Active Substance: SELENIUM

REACTIONS (5)
  - Product substitution issue [None]
  - Tremor [None]
  - Loss of personal independence in daily activities [None]
  - Fatigue [None]
  - Drug ineffective [None]

NARRATIVE: CASE EVENT DATE: 20180514
